FAERS Safety Report 25902977 (Version 1)
Quarter: 2025Q4

REPORT INFORMATION
  Report Type: Spontaneous
  Country: EU (occurrence: EU)
  Receive Date: 20251009
  Receipt Date: 20251009
  Transmission Date: 20260118
  Serious: Yes (Other)
  Sender: MERCK SHARP & DOHME LLC
  Company Number: EU-009507513-2334833

PATIENT
  Age: 57 Year
  Sex: Male

DRUGS (3)
  1. PEMBROLIZUMAB [Suspect]
     Active Substance: PEMBROLIZUMAB
     Indication: Laryngeal squamous cell carcinoma
     Dates: start: 20250206
  2. PEMBROLIZUMAB [Suspect]
     Active Substance: PEMBROLIZUMAB
     Indication: Laryngeal squamous cell carcinoma
  3. CISPLATIN [Suspect]
     Active Substance: CISPLATIN
     Indication: Laryngeal squamous cell carcinoma
     Dates: start: 20250206

REACTIONS (7)
  - Ophthalmoplegia [Unknown]
  - Eye movement disorder [Unknown]
  - Cranial nerve disorder [Unknown]
  - Diplopia [Unknown]
  - Malignant neoplasm progression [Unknown]
  - Immunotoxicity [Unknown]
  - Therapy partial responder [Unknown]
